FAERS Safety Report 9304417 (Version 2)
Quarter: 2013Q2

REPORT INFORMATION
  Report Type: Spontaneous
  Country: PR (occurrence: PR)
  Receive Date: 20130522
  Receipt Date: 20130621
  Transmission Date: 20140414
  Serious: Yes (Other)
  Sender: FDA-Public Use
  Company Number: PR-ABBOTT-13P-131-1092059-00

PATIENT
  Sex: Female
  Weight: 90.8 kg

DRUGS (11)
  1. HUMIRA [Suspect]
     Indication: RHEUMATOID ARTHRITIS
     Route: 058
     Dates: start: 2010
  2. ULTRACET [Concomitant]
     Indication: PAIN
     Route: 048
  3. KLONOPIN [Concomitant]
     Indication: MAJOR DEPRESSION
     Route: 048
  4. PRAVASTATIN [Concomitant]
     Indication: BLOOD CHOLESTEROL
     Dosage: AT NIGHT
     Route: 048
  5. CARVEDILOL [Concomitant]
     Indication: CARDIAC DISORDER
     Route: 048
  6. ZOLOFT [Concomitant]
     Indication: MAJOR DEPRESSION
     Route: 048
  7. ETODOLAC [Concomitant]
     Indication: PAIN
     Route: 048
  8. SKELAXIN [Concomitant]
     Indication: PAIN
     Dosage: AT NIGHT
     Route: 048
  9. PAMELOR [Concomitant]
     Indication: MAJOR DEPRESSION
     Route: 048
  10. CARAFATE [Concomitant]
     Indication: GASTRIC PH DECREASED
     Route: 048
  11. ARICEPT [Concomitant]
     Indication: MAJOR DEPRESSION
     Route: 048

REACTIONS (1)
  - Cardiac failure [Recovered/Resolved]
